FAERS Safety Report 23695946 (Version 1)
Quarter: 2024Q2

REPORT INFORMATION
  Report Type: Spontaneous
  Country: KW (occurrence: KW)
  Receive Date: 20240402
  Receipt Date: 20240402
  Transmission Date: 20240715
  Serious: Yes (Other)
  Sender: FDA-Public Use
  Company Number: KW-GILEAD-2024-0666940

PATIENT
  Sex: Male

DRUGS (1)
  1. EPCLUSA [Suspect]
     Active Substance: SOFOSBUVIR\VELPATASVIR
     Indication: Hepatic cirrhosis
     Dosage: UNK
     Route: 065
     Dates: start: 202305, end: 202307

REACTIONS (3)
  - Hepatitis C [Unknown]
  - Hepatocellular carcinoma [Unknown]
  - Drug ineffective [Unknown]
